FAERS Safety Report 6348626-2 (Version None)
Quarter: 2009Q3

REPORT INFORMATION
  Report Type: 
  Country: None (occurrence: None)
  Receive Date: 20090911
  Receipt Date: 20090829
  Transmission Date: 20100115
  Serious: Yes (Hospitalization, Other)
  Sender: FDA-Public Use
  Company Number: US-PFIZER INC-2007081014

PATIENT
  Sex: Female
  Weight: 54.422 kg

DRUGS (16)
  1. CHANTIX [Suspect]
     Indication: OSTEOPOROSIS
     Dosage: UNK
     Route: 048
     Dates: start: 20070901, end: 20070101
  2. CHANTIX [Suspect]
     Indication: SPINAL FUSION SURGERY
  3. CHANTIX [Suspect]
     Indication: NICOTINE DEPENDENCE
  4. CHANTIX [Suspect]
     Indication: SMOKING CESSATION THERAPY
  5. TERIPARATIDE [Concomitant]
  6. NEURONTIN [Concomitant]
  7. TOPAMAX [Concomitant]
  8. PREMARIN [Concomitant]
  9. TRAZODONE [Concomitant]
  10. CYMBALTA [Concomitant]
  11. PRIMIDONE [Concomitant]
  12. VITAMINS [Concomitant]
  13. VITAMIN E [Concomitant]
  14. DHEA [Concomitant]
  15. LEVOTHYROXINE SODIUM [Concomitant]
     Dosage: UNK
  16. LASIX [Concomitant]
     Dosage: UNK

REACTIONS (7)
  - DRUG ADMINISTRATION ERROR [None]
  - DRUG EFFECT PROLONGED [None]
  - DRUG TOXICITY [None]
  - LOSS OF CONSCIOUSNESS [None]
  - MALAISE [None]
  - OEDEMA PERIPHERAL [None]
  - VOMITING [None]
